FAERS Safety Report 8512781-6 (Version None)
Quarter: 2012Q3

REPORT INFORMATION
  Report Type: 
  Country: None (occurrence: None)
  Receive Date: 20120716
  Receipt Date: 20120705
  Transmission Date: 20120928
  Serious: Yes (Hospitalization, Other)
  Sender: FDA-Public Use
  Company Number: US-ASTRAZENECA-2012SE32805

PATIENT
  Age: 79 Year
  Sex: Female

DRUGS (2)
  1. NEXIUM [Suspect]
     Indication: GASTROOESOPHAGEAL REFLUX DISEASE
     Route: 048
  2. CHEMOTHERAPY [Suspect]
     Indication: CANCER IN REMISSION
     Route: 065
     Dates: start: 20110101

REACTIONS (6)
  - MALAISE [None]
  - LUNG DISORDER [None]
  - DRUG DOSE OMISSION [None]
  - HYPERSENSITIVITY [None]
  - DYSPEPSIA [None]
  - CANCER IN REMISSION [None]
